FAERS Safety Report 8041021-X (Version None)
Quarter: 2012Q1

REPORT INFORMATION
  Report Type: 
  Country: None (occurrence: None)
  Receive Date: 20120109
  Receipt Date: 20111227
  Transmission Date: 20120608
  Serious: Yes (Hospitalization)
  Sender: FDA-Public Use
  Company Number: UTC-013958

PATIENT
  Age: 55 Year
  Sex: Female
  Weight: 57.72 kg

DRUGS (3)
  1. DIURETICS [Concomitant]
  2. REMODULIN [Suspect]
     Indication: PULMONARY HYPERTENSION
     Dosage: 115.2 UG/KG (0.08 UG/KG, 1 IN 1 MIN), SUBCUTANEOUS
     Route: 058
     Dates: start: 20110309
  3. ADCIRCA [Concomitant]

REACTIONS (1)
  - INJECTION SITE INFECTION [None]
